FAERS Safety Report 9245226 (Version 1)
Quarter: 2013Q1

REPORT INFORMATION
  Report Type: Spontaneous
  Country: US (occurrence: None)
  Receive Date: 20121130
  Receipt Date: 20121130
  Transmission Date: 20140127
  Serious: Yes (Other)
  Sender: FDA-Public Use
  Company Number: 1208USA003052

PATIENT
  Sex: Female

DRUGS (2)
  1. FOSAMAX [Suspect]
     Indication: OSTEOPOROSIS
     Route: 048
     Dates: start: 200905
  2. BONIVA (IBANDRONATE SODIUM) [Suspect]
     Indication: OSTEOPOROSIS
     Dates: start: 200906, end: 20100920

REACTIONS (7)
  - Osteonecrosis of jaw [None]
  - Toothache [None]
  - Alveolar osteitis [None]
  - Temporomandibular joint syndrome [None]
  - Impaired healing [None]
  - Treatment failure [None]
  - Influenza like illness [None]
